FAERS Safety Report 16397033 (Version 1)
Quarter: 2019Q2

REPORT INFORMATION
  Report Type: Spontaneous
  Country: US (occurrence: US)
  Receive Date: 20190606
  Receipt Date: 20190606
  Transmission Date: 20190711
  Serious: Yes (Life-Threatening, Hospitalization, Other)
  Sender: FDA-Public Use
  Company Number: US-AUROBINDO-AUR-APL-2019-031529

PATIENT

DRUGS (1)
  1. ACETAMINOPHEN+DIPHENHYDRAMINE [Suspect]
     Active Substance: ACETAMINOPHEN\DIPHENHYDRAMINE HYDROCHLORIDE
     Indication: INTENTIONAL SELF-INJURY
     Dosage: UNK
     Route: 048

REACTIONS (5)
  - Alanine aminotransferase increased [Recovered/Resolved]
  - Aspartate aminotransferase increased [Recovered/Resolved]
  - Intentional overdose [Recovered/Resolved]
  - International normalised ratio increased [Recovered/Resolved]
  - Encephalopathy [Recovered/Resolved]
